FAERS Safety Report 4865034-1 (Version None)
Quarter: 2005Q4

REPORT INFORMATION
  Report Type: 
  Country: None (occurrence: None)
  Receive Date: 20051219
  Receipt Date: 20051206
  Transmission Date: 20060501
  Serious: Yes (Hospitalization, Other)
  Sender: FDA-Public Use
  Company Number: 2005US001806

PATIENT
  Age: 51 Year
  Sex: Female

DRUGS (1)
  1. AMBISOME [Suspect]
     Indication: HISTOPLASMOSIS
     Dosage: IV NOS
     Route: 042
     Dates: start: 20051116

REACTIONS (1)
  - NORMOCHROMIC NORMOCYTIC ANAEMIA [None]
